FAERS Safety Report 16444877 (Version 1)
Quarter: 2019Q2

REPORT INFORMATION
  Report Type: Spontaneous
  Country: US (occurrence: US)
  Receive Date: 20190508
  Receipt Date: 20190508
  Transmission Date: 20190711
  Serious: Yes (Hospitalization)
  Sender: FDA-Public Use
  Company Number: None

PATIENT
  Age: 16 Year
  Sex: Male
  Weight: 51.6 kg

DRUGS (3)
  1. METHOTREXATE. [Suspect]
     Active Substance: METHOTREXATE
     Dates: end: 20190402
  2. VINCRISTINE [Suspect]
     Active Substance: VINCRISTINE
     Dates: end: 20190416
  3. ONCASPAR [Suspect]
     Active Substance: PEGASPARGASE
     Dosage: ?          OTHER DOSE:7800 UNIT;?
     Dates: end: 20190411

REACTIONS (4)
  - Confusional state [None]
  - Leukoencephalopathy [None]
  - Mental status changes [None]
  - Abnormal behaviour [None]

NARRATIVE: CASE EVENT DATE: 20190418
